FAERS Safety Report 8916004 (Version 1)
Quarter: 2012Q4

REPORT INFORMATION
  Report Type: 
  Country: FR (occurrence: FR)
  Receive Date: 20121119
  Receipt Date: 20121119
  Transmission Date: 20130627
  Serious: Yes (Hospitalization)
  Sender: FDA-Public Use
  Company Number: FR-GLAXOSMITHKLINE-B0843335A

PATIENT
  Sex: Male

DRUGS (4)
  1. ARIXTRA [Suspect]
     Indication: VENOUS THROMBOSIS LIMB
     Dosage: 7.5MG Per day
     Route: 058
     Dates: start: 20120826, end: 20120910
  2. HYZAAR [Concomitant]
  3. STILNOX [Concomitant]
     Dosage: 1TAB Per day
     Route: 048
  4. CETIRIZINE [Concomitant]

REACTIONS (4)
  - Haematoma [Unknown]
  - Skin necrosis [Unknown]
  - Anaemia [Unknown]
  - Intentional drug misuse [Unknown]
